FAERS Safety Report 10633515 (Version 4)
Quarter: 2015Q4

REPORT INFORMATION
  Report Type: Spontaneous
  Country: DK (occurrence: DK)
  Receive Date: 20141205
  Receipt Date: 20151120
  Transmission Date: 20160304
  Serious: Yes (Death, Hospitalization, Disabling)
  Sender: FDA-Public Use
  Company Number: DK-SA-2014SA165654

PATIENT
  Age: 66 Year
  Sex: Male

DRUGS (4)
  1. PLAVIX [Suspect]
     Active Substance: CLOPIDOGREL BISULFATE
     Indication: CARDIOVASCULAR DISORDER
     Route: 065
     Dates: start: 20120827, end: 20120910
  2. VISIPAQUE [Suspect]
     Active Substance: IODIXANOL
     Indication: X-RAY WITH CONTRAST
     Route: 065
     Dates: start: 20120827, end: 20120827
  3. IOMERON [Suspect]
     Active Substance: IOMEPROL
     Indication: CORONARY ANGIOPLASTY
     Route: 065
     Dates: start: 20120827, end: 20120827
  4. HJERTEMAGNYL [Concomitant]
     Active Substance: ASPIRIN\MAGNESIUM OXIDE
     Indication: CARDIOVASCULAR DISORDER
     Route: 048
     Dates: start: 20120827

REACTIONS (5)
  - Rash pruritic [Unknown]
  - Haemodialysis [Not Recovered/Not Resolved]
  - Skin haemorrhage [Unknown]
  - Acute kidney injury [Unknown]
  - Renal failure [Recovering/Resolving]

NARRATIVE: CASE EVENT DATE: 20120827
